FAERS Safety Report 25246111 (Version 1)
Quarter: 2025Q2

REPORT INFORMATION
  Report Type: Spontaneous
  Country: CN (occurrence: CN)
  Receive Date: 20250428
  Receipt Date: 20250428
  Transmission Date: 20250716
  Serious: Yes (Other)
  Sender: PFIZER
  Company Number: CN-PFIZER INC-PV202500048221

PATIENT
  Age: 32 Year
  Sex: Female
  Weight: 75 kg

DRUGS (1)
  1. CARBOPROST TROMETHAMINE [Suspect]
     Active Substance: CARBOPROST TROMETHAMINE
     Indication: Uterine atony
     Dosage: 250 UG, 1X/DAY
     Route: 030
     Dates: start: 20250409, end: 20250409

REACTIONS (3)
  - Nausea [Recovering/Resolving]
  - Palpitations [Recovering/Resolving]
  - Gastrooesophageal reflux disease [Recovering/Resolving]

NARRATIVE: CASE EVENT DATE: 20250409
